FAERS Safety Report 7005210-5 (Version None)
Quarter: 2010Q3

REPORT INFORMATION
  Report Type: 
  Country: None (occurrence: None)
  Receive Date: 20100921
  Receipt Date: 20100908
  Transmission Date: 20110219
  Serious: No
  Sender: FDA-Public Use
  Company Number: US-B.I. PHARMACEUTICALS,INC./RIDGEFIELD-2010-BP-10221BP

PATIENT
  Sex: Female

DRUGS (6)
  1. SPIRIVA [Suspect]
     Indication: BRONCHITIS
     Dosage: 18 MCG
     Route: 055
     Dates: start: 20100907, end: 20100907
  2. LEVAQUIN [Suspect]
     Indication: BRONCHITIS
     Dosage: 500 MG
     Route: 048
     Dates: start: 20100907, end: 20100907
  3. BENZONATATE [Suspect]
     Indication: BRONCHITIS
     Dosage: 100 MG
     Route: 048
     Dates: start: 20100907, end: 20100907
  4. PROVENTIL [Suspect]
     Indication: BRONCHITIS
     Route: 055
     Dates: start: 20100907, end: 20100907
  5. GENERIC ZOCOR [Concomitant]
     Indication: BLOOD CHOLESTEROL INCREASED
     Dosage: 20 MG
     Route: 048
  6. LEVOTHYROXINE SODIUM [Concomitant]
     Indication: HYPOTHYROIDISM
     Dosage: 88 MCG
     Route: 048

REACTIONS (3)
  - AURICULAR SWELLING [None]
  - ERYTHEMA [None]
  - SWELLING FACE [None]
